FAERS Safety Report 11225812 (Version 4)
Quarter: 2016Q3

REPORT INFORMATION
  Report Type: Report from Study
  Country: ES (occurrence: ES)
  Receive Date: 20150629
  Receipt Date: 20160915
  Transmission Date: 20161109
  Serious: Yes (Hospitalization)
  Sender: FDA-Public Use
  Company Number: ES-ELI_LILLY_AND_COMPANY-ES201505008858

PATIENT
  Age: 29 Year
  Sex: Female
  Weight: 64.6 kg

DRUGS (6)
  1. ZYPADHERA [Suspect]
     Active Substance: OLANZAPINE PAMOATE
     Dosage: 300 MG 1 VIAL  POWDER + 1 VIAL SOLVENT 1.8 ML; ADMINISTER 285 MG.; AT BREAKFAST TIME
     Route: 030
     Dates: start: 20151007
  2. ZYPADHERA [Suspect]
     Active Substance: OLANZAPINE PAMOATE
     Dosage: 300 MG 1 VIAL POWDER + 1 VIAL SOLVENT 1.8 ML; ADMINISTER 285 MG.; AT BREAKFAST TIME;
     Route: 030
     Dates: start: 20140716
  3. ZYPADHERA [Suspect]
     Active Substance: OLANZAPINE PAMOATE
     Dosage: 300 MG 1 VIAL POWDER + 1 VIAL SOLVENT 1.8 ML; ADMINISTER 300 MG.; AT BREAKFASTIME
     Route: 030
     Dates: start: 20150617
  4. ZYPADHERA [Suspect]
     Active Substance: OLANZAPINE PAMOATE
     Indication: SCHIZOPHRENIA
     Dosage: 300 MG 1 VIAL POWDER + 1 VIAL SOLVENT 1.8 ML; ADMINISTER 285 MG.
     Route: 030
     Dates: start: 20130728
  5. ZYPADHERA [Suspect]
     Active Substance: OLANZAPINE PAMOATE
     Dosage: 300 MG 1 VIAL POWDER + 1 VIAL SOLVENT 1.8 ML; ADMINISTER 270 MG.; AT BREAKFAST TIME
     Route: 030
     Dates: start: 20150127
  6. ZYPADHERA [Suspect]
     Active Substance: OLANZAPINE PAMOATE
     Dosage: 300 MG 1 VIAL  POWDER + 1 VIAL SOLVENT 1.8 ML; ADMINISTER 270  MG.; AT BREAKFAST TIME
     Route: 030
     Dates: start: 20160613

REACTIONS (5)
  - Dizziness [Recovered/Resolved]
  - Sensory disturbance [Recovered/Resolved]
  - Somnolence [Recovered/Resolved]
  - Blood pressure increased [Recovered/Resolved]
  - Gait disturbance [Recovered/Resolved]

NARRATIVE: CASE EVENT DATE: 20150520
